FAERS Safety Report 9583022 (Version 1)
Quarter: 2013Q4

REPORT INFORMATION
  Report Type: Spontaneous
  Country: US (occurrence: US)
  Receive Date: 20131002
  Receipt Date: 20131002
  Transmission Date: 20140711
  Serious: No
  Sender: FDA-Public Use
  Company Number: US-AMGEN-USASP2013044818

PATIENT
  Age: 56 Year
  Sex: Female

DRUGS (6)
  1. ENBREL [Suspect]
     Indication: PRODUCT USED FOR UNKNOWN INDICATION
     Dosage: 50 MG, UNK
     Route: 058
  2. NEURONTIN [Concomitant]
     Dosage: 600 MG, UNK
  3. INDERAL [Concomitant]
     Dosage: 20 MG, UNK
  4. PRILOSEC                           /00661201/ [Concomitant]
     Dosage: 40 MG, UNK
  5. TYLENOL                            /00020001/ [Concomitant]
     Dosage: 325 MG, UNK
  6. VITAMIN B12                        /00056201/ [Concomitant]
     Dosage: 1000 MUG, UNK

REACTIONS (1)
  - Sinusitis [Unknown]
